FAERS Safety Report 6397512-0 (Version None)
Quarter: 2009Q4

REPORT INFORMATION
  Report Type: 
  Country: None (occurrence: None)
  Receive Date: 20091012
  Receipt Date: 20091002
  Transmission Date: 20100525
  Serious: Yes (Hospitalization)
  Sender: FDA-Public Use
  Company Number: DE-BAYER-200934931GPV

PATIENT
  Age: 43 Year
  Sex: Male
  Weight: 75 kg

DRUGS (1)
  1. MAGNOGRAF [Suspect]
     Indication: COMPUTERISED TOMOGRAM

REACTIONS (3)
  - DYSPNOEA [None]
  - SPEECH DISORDER [None]
  - STRIDOR [None]
